FAERS Safety Report 7391139-X (Version None)
Quarter: 2011Q2

REPORT INFORMATION
  Report Type: 
  Country: None (occurrence: None)
  Receive Date: 20110404
  Receipt Date: 20110322
  Transmission Date: 20111010
  Serious: Yes (Other)
  Sender: FDA-Public Use
  Company Number: BE-ASTRAZENECA-2011SE17120

PATIENT
  Age: 14874 Day
  Sex: Male
  Weight: 55 kg

DRUGS (4)
  1. FLUOXINE [Concomitant]
  2. SUBOXINE [Concomitant]
  3. SEROQUEL [Suspect]
     Indication: PSYCHOTIC DISORDER
     Route: 048
     Dates: start: 20101231, end: 20110201
  4. INVEGA [Concomitant]
     Indication: PSYCHOTIC DISORDER

REACTIONS (4)
  - NEUTROPENIA [None]
  - ANAEMIA [None]
  - THROMBOCYTOPENIA [None]
  - AGRANULOCYTOSIS [None]
